FAERS Safety Report 23093894 (Version 1)
Quarter: 2023Q4

REPORT INFORMATION
  Report Type: Spontaneous
  Country: MX (occurrence: MX)
  Receive Date: 20231023
  Receipt Date: 20231023
  Transmission Date: 20240109
  Serious: Yes (Other)
  Sender: FDA-Public Use
  Company Number: MX-ROCHE-3436230

PATIENT
  Age: 31 Year
  Sex: Female
  Weight: 60 kg

DRUGS (8)
  1. CLONAZEPAM [Suspect]
     Active Substance: CLONAZEPAM
     Indication: Product used for unknown indication
     Dosage: BID?DAILY DOSE: 2 MILLIGRAM
  2. OCREVUS [Suspect]
     Active Substance: OCRELIZUMAB
     Indication: Relapsing-remitting multiple sclerosis
     Dosage: OCRELIZUMAB VIAL 300MG/10ML (30MG/ML)
     Route: 042
     Dates: start: 20200830
  3. MODAFINIL [Suspect]
     Active Substance: MODAFINIL
     Indication: Fatigue
  4. FLUOXETINE [Concomitant]
     Active Substance: FLUOXETINE HYDROCHLORIDE
  5. ACETAMINOPHEN [Concomitant]
     Active Substance: ACETAMINOPHEN
     Indication: Premedication
     Dosage: UNIQUE DOSE, 30 MINUTES BEFORE THE OCREVUS INFUSION START
     Route: 048
  6. DIPHENHYDRAMINE [Concomitant]
     Active Substance: DIPHENHYDRAMINE
     Indication: Premedication
     Dosage: UNIQUE DOSE, 30 MINUTES BEFORE THE OCREVUS INFUSION START
     Route: 042
  7. HYDROCORTISONE [Concomitant]
     Active Substance: HYDROCORTISONE
     Indication: Premedication
     Dosage: UNIQUE DOSE, 30 MINUTES BEFORE THE OCREVUS INFUSION START
     Route: 042
  8. OMEPRAZOLE [Concomitant]
     Active Substance: OMEPRAZOLE
     Indication: Premedication
     Dosage: UNIQUE DOSE, 30 MINUTES BEFORE THE OCREVUS INFUSION START
     Route: 042

REACTIONS (7)
  - Optic neuritis [Unknown]
  - Optic atrophy [Unknown]
  - Retinal degeneration [Unknown]
  - Hypotension [Unknown]
  - Fatigue [Unknown]
  - Headache [Unknown]
  - Paraesthesia [Unknown]

NARRATIVE: CASE EVENT DATE: 20210904
